FAERS Safety Report 5497872-9 (Version None)
Quarter: 2007Q4

REPORT INFORMATION
  Report Type: 
  Country: None (occurrence: None)
  Receive Date: 20071018
  Receipt Date: 20070807
  Transmission Date: 20080405
  Serious: Yes (Death, Other)
  Sender: FDA-Public Use
  Company Number: 2007065971

PATIENT
  Sex: Male

DRUGS (6)
  1. NEURONTIN [Suspect]
     Indication: ATTENTION DEFICIT/HYPERACTIVITY DISORDER
     Dosage: (800 MG), ORAL
     Route: 048
  2. NEURONTIN [Suspect]
     Indication: BIPOLAR DISORDER
     Dosage: (800 MG), ORAL
     Route: 048
  3. NEURONTIN [Suspect]
     Indication: MANIA
     Dosage: (800 MG), ORAL
     Route: 048
  4. GABAPENTIN [Suspect]
     Indication: ATTENTION DEFICIT/HYPERACTIVITY DISORDER
     Dosage: (800 MG), ORAL
     Route: 048
  5. GABAPENTIN [Suspect]
     Indication: BIPOLAR DISORDER
     Dosage: (800 MG), ORAL
     Route: 048
  6. GABAPENTIN [Suspect]
     Indication: MANIA
     Dosage: (800 MG), ORAL
     Route: 048

REACTIONS (1)
  - COMPLETED SUICIDE [None]
